FAERS Safety Report 7833468-9 (Version None)
Quarter: 2011Q4

REPORT INFORMATION
  Report Type: 
  Country: None (occurrence: None)
  Receive Date: 20111024
  Receipt Date: 20111012
  Transmission Date: 20120403
  Serious: Yes (Other)
  Sender: FDA-Public Use
  Company Number: TR-ASTELLAS-2011EU007074

PATIENT
  Age: 22 Year
  Sex: Male

DRUGS (3)
  1. MYCOPHENOLATE MOFETIL [Suspect]
     Indication: RENAL TRANSPLANT
     Dosage: UNK
     Route: 065
  2. CORTICOSTEROIDS [Suspect]
     Indication: RENAL TRANSPLANT
     Dosage: UNK
     Route: 050
  3. TACROLIMUS [Suspect]
     Indication: RENAL TRANSPLANT
     Dosage: UNK
     Route: 065

REACTIONS (1)
  - SCLEROSING ENCAPSULATING PERITONITIS [None]
